FAERS Safety Report 10146759 (Version 4)
Quarter: 2014Q2

REPORT INFORMATION
  Report Type: Spontaneous
  Country: US (occurrence: US)
  Receive Date: 20140501
  Receipt Date: 20140605
  Transmission Date: 20141212
  Serious: No
  Sender: FDA-Public Use
  Company Number: US-009507513-1202USA00431

PATIENT
  Sex: Male
  Weight: 100.68 kg

DRUGS (3)
  1. PROPECIA [Suspect]
     Indication: ANDROGENETIC ALOPECIA
     Dosage: 1 MG, QD
     Route: 048
     Dates: start: 20061127, end: 200901
  2. PROPECIA [Suspect]
     Dosage: 1 MG, QD
     Route: 048
     Dates: start: 2010, end: 20100823
  3. LEXAPRO [Concomitant]
     Indication: OBSESSIVE-COMPULSIVE DISORDER
     Dosage: UNK
     Dates: start: 2002, end: 2008

REACTIONS (30)
  - Sexual dysfunction [Not Recovered/Not Resolved]
  - Drug ineffective [Unknown]
  - Libido decreased [Unknown]
  - Depression [Unknown]
  - Cognitive disorder [Not Recovered/Not Resolved]
  - Organic erectile dysfunction [Not Recovered/Not Resolved]
  - Oropharyngeal pain [Recovered/Resolved]
  - Cough [Unknown]
  - Bronchitis [Unknown]
  - Insomnia [Unknown]
  - Pain [Unknown]
  - Fatigue [Unknown]
  - Lower gastrointestinal haemorrhage [Unknown]
  - Anal fissure [Unknown]
  - Acute sinusitis [Unknown]
  - Upper respiratory tract infection [Unknown]
  - Abdominal pain [Unknown]
  - Inflammation [Unknown]
  - Obstructive airways disorder [Unknown]
  - Bronchial disorder [Unknown]
  - Hypertension [Unknown]
  - Anxiety [Unknown]
  - Bronchitis [Not Recovered/Not Resolved]
  - Oestradiol increased [Unknown]
  - Premature ejaculation [Unknown]
  - Perineal injury [Unknown]
  - Peyronie^s disease [Unknown]
  - Neuronal neuropathy [Unknown]
  - Penis disorder [Unknown]
  - Penile vascular disorder [Unknown]
